FAERS Safety Report 8807247 (Version 1)
Quarter: 2012Q4

REPORT INFORMATION
  Report Type: 
  Country: DE (occurrence: DE)
  Receive Date: 20120925
  Receipt Date: 20120925
  Transmission Date: 20130627
  Serious: Yes (Other)
  Sender: FDA-Public Use
  Company Number: DE-BAYER-2012-089787

PATIENT
  Age: 75 Year
  Sex: Male
  Weight: 88 kg

DRUGS (7)
  1. XARELTO [Suspect]
     Indication: ATRIAL FLUTTER
     Dosage: 10 mg, UNK
     Route: 048
     Dates: start: 20120814, end: 20120819
  2. ACETYLSALICYLIC ACID [Interacting]
     Dosage: UNK
     Dates: start: 20120814, end: 20120819
  3. SIMVASTATIN [Suspect]
     Dosage: 10 mg, QD
  4. ALLOPURINOL [Suspect]
     Dosage: 150 mg, QD
  5. BELOC-ZOK [Concomitant]
     Dosage: 95 mg, QD
  6. BELOC-ZOK [Concomitant]
     Dosage: 47.5 mg, QD
  7. ATACAND [CANDESARTAN CILEXETIL] [Concomitant]
     Dosage: 4 mg, QD

REACTIONS (3)
  - Urinary bladder haemorrhage [None]
  - Blood urine present [None]
  - Joint swelling [None]
